FAERS Safety Report 4483699-3 (Version None)
Quarter: 2004Q4

REPORT INFORMATION
  Report Type: 
  Country: None (occurrence: None)
  Receive Date: 20041022
  Receipt Date: 20041022
  Transmission Date: 20050328
  Serious: Yes (Other)
  Sender: FDA-Public Use
  Company Number: None

PATIENT
  Age: 45 Year
  Sex: Female
  Weight: 99.7913 kg

DRUGS (1)
  1. ZOMETA [Suspect]
     Indication: BREAST CANCER METASTATIC
     Dosage: IV MONTHLY
     Route: 042
     Dates: end: 20040601

REACTIONS (4)
  - GINGIVAL PAIN [None]
  - OSTEONECROSIS [None]
  - TONGUE INJURY [None]
  - TOOTH DISORDER [None]
